FAERS Safety Report 7304072-6 (Version None)
Quarter: 2011Q1

REPORT INFORMATION
  Report Type: 
  Country: None (occurrence: None)
  Receive Date: 20110221
  Receipt Date: 20110210
  Transmission Date: 20110831
  Serious: Yes (Hospitalization)
  Sender: FDA-Public Use
  Company Number: PHHO2009DE13795

PATIENT
  Sex: Female

DRUGS (4)
  1. MYFORTIC [Concomitant]
     Indication: RENAL TRANSPLANT
     Dosage: 1440MG
     Route: 048
     Dates: start: 20090704
  2. PREDNISONE [Concomitant]
     Indication: RENAL TRANSPLANT
     Dosage: 7.5 MG, UNK
     Route: 048
     Dates: start: 20091003
  3. PREDNISONE [Concomitant]
     Dosage: 100 MG, UNK
     Route: 048
     Dates: start: 20091107, end: 20091110
  4. EVEROLIMUS [Suspect]
     Indication: RENAL TRANSPLANT
     Dosage: 4.5MG
     Route: 048
     Dates: start: 20090930, end: 20091105

REACTIONS (3)
  - BLOOD CREATININE INCREASED [None]
  - TRANSPLANT REJECTION [None]
  - TUBULOINTERSTITIAL NEPHRITIS [None]
